FAERS Safety Report 20718195 (Version 1)
Quarter: 2022Q2

REPORT INFORMATION
  Report Type: Spontaneous
  Country: NL (occurrence: NL)
  Receive Date: 20220418
  Receipt Date: 20220418
  Transmission Date: 20220721
  Serious: Yes (Other)
  Sender: FDA-Public Use
  Company Number: NL-LRB-00801112

PATIENT
  Sex: Male
  Weight: 74 kg

DRUGS (2)
  1. ATORVASTATIN [Suspect]
     Active Substance: ATORVASTATIN
     Indication: Angina pectoris
     Dosage: 1 X PER DAG 40MG
     Route: 065
     Dates: start: 201705, end: 20210801
  2. ACETYLSALICYLZUUR TABLET  80MG / Brand name not specifiedACETYLSALI... [Concomitant]
     Indication: Product used for unknown indication
     Dosage: TABLET, 80 MG (MILLIGRAM) ()
     Route: 065

REACTIONS (1)
  - Polyneuropathy [Recovering/Resolving]
